FAERS Safety Report 24206451 (Version 1)
Quarter: 2024Q3

REPORT INFORMATION
  Report Type: Spontaneous
  Country: US (occurrence: US)
  Receive Date: 20240813
  Receipt Date: 20240813
  Transmission Date: 20241016
  Serious: No
  Sender: BAUSCH AND LOMB
  Company Number: US-BAUSCH-BL-2024-012112

PATIENT
  Sex: Male

DRUGS (6)
  1. VASERETIC [Suspect]
     Active Substance: ENALAPRIL MALEATE\HYDROCHLOROTHIAZIDE
     Indication: Product used for unknown indication
     Dosage: 25/10 MG
     Route: 065
  2. BESREMI [Suspect]
     Active Substance: ROPEGINTERFERON ALFA-2B-NJFT
     Indication: Cutaneous T-cell lymphoma
     Dosage: ONCE EVERY TWO WEEKS (Q2W)
     Route: 058
     Dates: start: 20230509
  3. BESREMI [Suspect]
     Active Substance: ROPEGINTERFERON ALFA-2B-NJFT
     Dosage: ONCE EVERY TWO WEEKS (Q2W) VIA SUBCUTANEOUS ROUTE
     Route: 058
  4. LEVOTHYROXINE [Concomitant]
     Active Substance: LEVOTHYROXINE\LEVOTHYROXINE SODIUM
     Indication: Product used for unknown indication
  5. ATORVASTATIN [Concomitant]
     Active Substance: ATORVASTATIN
     Indication: Product used for unknown indication
  6. VASCEPA [Concomitant]
     Active Substance: ICOSAPENT ETHYL
     Indication: Product used for unknown indication

REACTIONS (3)
  - Blood triglycerides increased [Recovered/Resolved]
  - Emotional disorder [Unknown]
  - Frustration tolerance decreased [Unknown]

NARRATIVE: CASE EVENT DATE: 20230101
